FAERS Safety Report 10286497 (Version 1)
Quarter: 2014Q3

REPORT INFORMATION
  Report Type: Spontaneous
  Country: IT (occurrence: IT)
  Receive Date: 20140709
  Receipt Date: 20140709
  Transmission Date: 20150326
  Serious: Yes (Other)
  Sender: FDA-Public Use
  Company Number: IT-JNJFOC-20140703715

PATIENT
  Age: 19 Year
  Sex: Male
  Weight: 70 kg

DRUGS (1)
  1. PALEXIA [Suspect]
     Active Substance: TAPENTADOL HYDROCHLORIDE
     Indication: PAIN
     Route: 048
     Dates: start: 2012, end: 20140520

REACTIONS (2)
  - Hyperuricaemia [Recovered/Resolved]
  - Hypercreatininaemia [Recovered/Resolved]

NARRATIVE: CASE EVENT DATE: 20140520
